FAERS Safety Report 8609711-5 (Version None)
Quarter: 2012Q3

REPORT INFORMATION
  Report Type: 
  Country: None (occurrence: None)
  Receive Date: 20120821
  Receipt Date: 20120810
  Transmission Date: 20120928
  Serious: Yes (Other)
  Sender: FDA-Public Use
  Company Number: US-CELGENEUS-163-21880-12081274

PATIENT
  Sex: Male
  Weight: 82.628 kg

DRUGS (11)
  1. OXYGEN [Concomitant]
     Dosage: 2L
     Route: 065
  2. REVLIMID [Suspect]
     Indication: MULTIPLE MYELOMA
     Dosage: 15 MILLIGRAM
     Route: 048
     Dates: start: 20120201
  3. REVLIMID [Suspect]
     Route: 048
     Dates: start: 20120301
  4. DEXAMETHASONE TAB [Concomitant]
     Route: 065
  5. LORAZEPAM [Concomitant]
     Route: 065
  6. PERCOCET [Concomitant]
     Route: 065
  7. AMBIEN [Concomitant]
     Route: 065
  8. VITAMIN B-12 [Concomitant]
     Route: 050
  9. LEXAPRO [Concomitant]
     Route: 065
  10. OMEPRAZOLE [Concomitant]
     Route: 065
  11. MIRTAZAPINE [Concomitant]
     Route: 065

REACTIONS (5)
  - BONE PAIN [None]
  - DEMENTIA ALZHEIMER'S TYPE [None]
  - ANXIETY [None]
  - FATIGUE [None]
  - CONSTIPATION [None]
